FAERS Safety Report 21720635 (Version 1)
Quarter: 2022Q4

REPORT INFORMATION
  Report Type: Spontaneous
  Country: US (occurrence: US)
  Receive Date: 20221213
  Receipt Date: 20221213
  Transmission Date: 20230113
  Serious: Yes (Other)
  Sender: FDA-Public Use
  Company Number: US-STRIDES ARCOLAB LIMITED-2022SP015406

PATIENT
  Age: 64 Year
  Sex: Female

DRUGS (7)
  1. PREDNISOLONE [Suspect]
     Active Substance: PREDNISOLONE
     Indication: Aplasia pure red cell
     Dosage: 60 MILLIGRAM PER DAY
     Route: 065
  2. CYCLOSPORINE [Suspect]
     Active Substance: CYCLOSPORINE
     Indication: Aplasia pure red cell
     Dosage: UNK
     Route: 065
  3. RITUXIMAB [Suspect]
     Active Substance: RITUXIMAB
     Indication: Aplasia pure red cell
     Dosage: 375 MILLIGRAM/SQ. METER PER WEEK (FOUR DOSES)
     Route: 065
  4. THYMOCYTE IMMUNE GLOBULIN NOS [Suspect]
     Active Substance: THYMOCYTE IMMUNE GLOBULIN NOS
     Indication: Aplasia pure red cell
     Dosage: UNK
     Route: 065
  5. ALEMTUZUMAB [Suspect]
     Active Substance: ALEMTUZUMAB
     Indication: Aplasia pure red cell
     Dosage: UNK
     Route: 065
  6. BORTEZOMIB [Suspect]
     Active Substance: BORTEZOMIB
     Indication: Aplasia pure red cell
     Dosage: 2 MILLIGRAM PER WEEK (2 WEEKS ON AND 1 WEEK OFF; TOTAL OF 8 CYCLES)
     Route: 058
  7. ELTROMBOPAG [Suspect]
     Active Substance: ELTROMBOPAG
     Indication: Aplasia pure red cell
     Dosage: 125 MILLIGRAM PER DAY
     Route: 065

REACTIONS (1)
  - Drug ineffective [Unknown]
